FAERS Safety Report 14021736 (Version 2)
Quarter: 2017Q4

REPORT INFORMATION
  Report Type: Report from Study
  Country: US (occurrence: US)
  Receive Date: 20170928
  Receipt Date: 20171226
  Transmission Date: 20180321
  Serious: No
  Sender: FDA-Public Use
  Company Number: US-CLOVIS ONCOLOGY-CLO-2017-000782

PATIENT
  Age: 73 Year
  Sex: Female

DRUGS (1)
  1. RUBRACA [Suspect]
     Active Substance: RUCAPARIB CAMSYLATE
     Indication: OVARIAN CANCER
     Dosage: 600 MG, BID
     Route: 048
     Dates: start: 20170703

REACTIONS (18)
  - Cough [Unknown]
  - Platelet count decreased [Recovering/Resolving]
  - Diarrhoea [Unknown]
  - Back pain [Unknown]
  - Ear lobe infection [Unknown]
  - Increased appetite [Unknown]
  - Flushing [Unknown]
  - Temporomandibular joint syndrome [Unknown]
  - Nausea [Unknown]
  - Feeling abnormal [Unknown]
  - Fatigue [Not Recovered/Not Resolved]
  - Joint swelling [Recovering/Resolving]
  - Sinusitis [Recovering/Resolving]
  - Malignant neoplasm progression [Unknown]
  - Paranasal sinus hypersecretion [Unknown]
  - White blood cell count decreased [Recovering/Resolving]
  - Red blood cell count decreased [Not Recovered/Not Resolved]
  - Dizziness [Unknown]

NARRATIVE: CASE EVENT DATE: 2017
